FAERS Safety Report 5997550-3 (Version None)
Quarter: 2008Q4

REPORT INFORMATION
  Report Type: 
  Country: None (occurrence: None)
  Receive Date: 20081212
  Receipt Date: 20081114
  Transmission Date: 20090506
  Serious: No
  Sender: FDA-Public Use
  Company Number: US-ABBOTT-08P-163-0487958-00

PATIENT
  Sex: Female
  Weight: 63.56 kg

DRUGS (7)
  1. HUMIRA [Suspect]
     Indication: DRUG USE FOR UNKNOWN INDICATION
     Route: 048
  2. METHOTREXATE [Concomitant]
     Indication: DRUG USE FOR UNKNOWN INDICATION
     Route: 048
  3. LEVOTHYROXINE SODIUM [Concomitant]
     Indication: THYROID HORMONE REPLACEMENT THERAPY
     Route: 048
     Dates: start: 19700101
  4. DICLOFENAC [Concomitant]
     Indication: ANTIINFLAMMATORY THERAPY
     Route: 048
  5. ERGOCALCIFEROL [Concomitant]
     Indication: DRUG USE FOR UNKNOWN INDICATION
     Route: 048
  6. FOLIC ACID [Concomitant]
     Indication: DRUG USE FOR UNKNOWN INDICATION
     Route: 048
  7. ALENDRONATE SODIUM [Concomitant]
     Indication: OSTEOPOROSIS PROPHYLAXIS
     Dates: start: 19900101

REACTIONS (2)
  - INCORRECT DOSE ADMINISTERED [None]
  - INJECTION SITE IRRITATION [None]
